FAERS Safety Report 9114507 (Version 1)
Quarter: 2013Q1

REPORT INFORMATION
  Report Type: Spontaneous
  Country: US (occurrence: None)
  Receive Date: 20130220
  Receipt Date: 20130220
  Transmission Date: 20140127
  Serious: Yes (Other)
  Sender: FDA-Public Use
  Company Number: None

PATIENT
  Age: 4 Year
  Sex: Male
  Weight: 16.33 kg

DRUGS (2)
  1. MONTELUKAST [Suspect]
     Indication: ASTHMA
     Dosage: 1 TABLET   ONCE DAY   PO?02/04/2013  --  02/11/2013
     Route: 048
     Dates: start: 20130204, end: 20130211
  2. MONTELUKAST [Suspect]
     Dosage: 1 TABLET  ONCE DAY  PO?HAD BEEN ON MYLAN PRODUCT?11/01/2012  --  02/04/2013
     Route: 048
     Dates: start: 20121101, end: 20130204

REACTIONS (2)
  - Hallucination [None]
  - Abnormal behaviour [None]
